FAERS Safety Report 7767170-9 (Version None)
Quarter: 2011Q3

REPORT INFORMATION
  Report Type: 
  Country: None (occurrence: None)
  Receive Date: 20110922
  Receipt Date: 20110503
  Transmission Date: 20111222
  Serious: No
  Sender: FDA-Public Use
  Company Number: US-ASTRAZENECA-2011SE26387

PATIENT
  Age: 17 Year
  Sex: Male

DRUGS (2)
  1. SEROQUEL XR [Suspect]
     Indication: BIPOLAR II DISORDER
     Route: 048
     Dates: start: 20100901
  2. LITHIUM CARBONATE [Concomitant]
     Dosage: 450 MG AM AND 600 MG PM

REACTIONS (4)
  - MYDRIASIS [None]
  - DRUG PRESCRIBING ERROR [None]
  - SOMNOLENCE [None]
  - ACCOMMODATION DISORDER [None]
